FAERS Safety Report 5263912-5 (Version None)
Quarter: 2007Q1

REPORT INFORMATION
  Report Type: 
  Country: None (occurrence: None)
  Receive Date: 20070313
  Receipt Date: 20070228
  Transmission Date: 20070707
  Serious: Yes (Life-Threatening, Hospitalization)
  Sender: FDA-Public Use
  Company Number: IE-ELI_LILLY_AND_COMPANY-IE200701002939

PATIENT
  Age: 54 Year
  Sex: Female
  Weight: 70 kg

DRUGS (14)
  1. GEMZAR [Suspect]
     Indication: NON-SMALL CELL LUNG CANCER STAGE IV
     Dosage: 1200 MG/M2, UNK
     Route: 042
     Dates: start: 20061006, end: 20061013
  2. GEMZAR [Suspect]
     Dosage: 1000 MG/M2, UNK
     Route: 042
     Dates: start: 20061106
  3. GEMZAR [Suspect]
     Dosage: 750 MG/M2, UNK
     Dates: end: 20061228
  4. GEMZAR [Suspect]
     Dosage: 1000 MG/M2, UNK
     Route: 042
  5. CARBOPLATIN [Concomitant]
     Indication: NON-SMALL CELL LUNG CANCER STAGE IV
     Dosage: 80 MG/M2, UNK
     Route: 042
  6. ESOMEPRAZOLE MAGNESIUM [Concomitant]
     Dosage: 40 MG, UNK
     Route: 048
  7. ZOPICLONE [Concomitant]
     Indication: INSOMNIA
     Dosage: 7.5 MG, UNK
     Route: 048
     Dates: start: 20061005
  8. PROPYLTHIOURACIL [Concomitant]
     Dosage: 50 MG, DAILY (1/D)
     Route: 048
  9. MESULID [Concomitant]
     Dosage: 100 MG, DAILY (1/D)
     Route: 048
  10. MYCOSTATIN [Concomitant]
     Indication: PROPHYLAXIS
     Dosage: UNK, 3/D
     Route: 048
     Dates: start: 20061005, end: 20070123
  11. CORSODYL [Concomitant]
     Indication: PROPHYLAXIS
     Dosage: UNK, 3/D
     Route: 048
     Dates: start: 20061005, end: 20070123
  12. DEXAMETHASONE [Concomitant]
     Dosage: 12 MG, OTHER
     Route: 042
     Dates: start: 20061005, end: 20061230
  13. DEXAMETHASONE [Concomitant]
     Dosage: 8 MG, OTHER
     Route: 048
     Dates: start: 20061005, end: 20061230
  14. GRANISETRON [Concomitant]
     Dosage: 2 MG, OTHER
     Route: 048
     Dates: start: 20061005, end: 20061230

REACTIONS (3)
  - NEUTROPHIL COUNT DECREASED [None]
  - PLATELET COUNT DECREASED [None]
  - PULMONARY EMBOLISM [None]
